FAERS Safety Report 5117122-2 (Version None)
Quarter: 2006Q3

REPORT INFORMATION
  Report Type: 
  Country: None (occurrence: None)
  Receive Date: 20060929
  Receipt Date: 20060918
  Transmission Date: 20061208
  Serious: Yes (Hospitalization)
  Sender: FDA-Public Use
  Company Number: GB-ABBOTT-06P-167-0344114-00

PATIENT
  Age: 63 Year
  Sex: Male

DRUGS (2)
  1. VALPROATE SODIUM [Suspect]
     Indication: CONVULSION
     Route: 048
     Dates: start: 19920101, end: 19980101
  2. VALPROATE SODIUM [Suspect]
     Dates: start: 19980101

REACTIONS (10)
  - ABNORMAL BEHAVIOUR [None]
  - BREATH ODOUR [None]
  - ERYTHEMA [None]
  - EYE DISORDER [None]
  - FEELING ABNORMAL [None]
  - HEART RATE IRREGULAR [None]
  - INCOHERENT [None]
  - INCONTINENCE [None]
  - TOOTH DISCOLOURATION [None]
  - TREMOR [None]
